FAERS Safety Report 22237219 (Version 1)
Quarter: 2023Q2

REPORT INFORMATION
  Report Type: Spontaneous
  Country: US (occurrence: None)
  Receive Date: 20230421
  Receipt Date: 20230421
  Transmission Date: 20230721
  Serious: No
  Sender: FDA-Public Use
  Company Number: US-ROCHE-3287647

PATIENT
  Age: 82 Year
  Sex: Female

DRUGS (20)
  1. ESBRIET [Suspect]
     Active Substance: PIRFENIDONE
     Indication: Pulmonary fibrosis
     Dosage: TAKE 1 CAPSULE BY MOUTH THREE TIMES A DAY
     Route: 048
  2. XARELTO [Concomitant]
     Active Substance: RIVAROXABAN
  3. CYMBALTA [Concomitant]
     Active Substance: DULOXETINE HYDROCHLORIDE
  4. ALLOPURINOL [Concomitant]
     Active Substance: ALLOPURINOL
  5. AMOXICILLIN [Concomitant]
     Active Substance: AMOXICILLIN
  6. ATENOLOL [Concomitant]
     Active Substance: ATENOLOL
  7. DICLOFENAC [Concomitant]
     Active Substance: DICLOFENAC
     Dosage: SOLUTION 0.1%
  8. ESZOPICLONE [Concomitant]
     Active Substance: ESZOPICLONE
  9. FLUDROCORTISONE [Concomitant]
     Active Substance: FLUDROCORTISONE
  10. GABAPENTIN [Concomitant]
     Active Substance: GABAPENTIN
  11. ISOSORBIDE MONONITRATE [Concomitant]
     Active Substance: ISOSORBIDE MONONITRATE
  12. KLOR-CON [Concomitant]
     Active Substance: POTASSIUM CHLORIDE
     Dosage: M20 MEQ ER
  13. NITROSTAT [Concomitant]
     Active Substance: NITROGLYCERIN
     Dosage: SUB
  14. APAP;OXYCODONE [Concomitant]
     Dosage: 5-325 MG
  15. PANTOPRAZOLE [Concomitant]
     Active Substance: PANTOPRAZOLE
  16. POLYETHYLENE GLYCOL 3350 [Concomitant]
     Active Substance: POLYETHYLENE GLYCOL 3350
     Dosage: POW
  17. PREDNISOLONE [Concomitant]
     Active Substance: PREDNISOLONE
     Dosage: SUS 1% OP
  18. SERTRALINE [Concomitant]
     Active Substance: SERTRALINE HYDROCHLORIDE
  19. SODIUM CHLORIDE [Concomitant]
     Active Substance: SODIUM CHLORIDE
  20. VIGAMOX [Concomitant]
     Active Substance: MOXIFLOXACIN HYDROCHLORIDE
     Dosage: DRO 0.5%

REACTIONS (2)
  - Drug ineffective [Unknown]
  - No adverse event [Unknown]
